FAERS Safety Report 19479973 (Version 2)
Quarter: 2021Q3

REPORT INFORMATION
  Report Type: Spontaneous
  Country: US (occurrence: US)
  Receive Date: 20210630
  Receipt Date: 20210727
  Transmission Date: 20211014
  Serious: No
  Sender: FDA-Public Use
  Company Number: US-AIMMUNE THERAPEUTICS, INC.-2021AIMT00362

PATIENT

DRUGS (2)
  1. PALFORZIA [Suspect]
     Active Substance: PEANUT
     Indication: FOOD ALLERGY
     Dosage: 120 MG, 1X/DAY
     Route: 048
     Dates: start: 20210429
  2. PALFORZIA [Suspect]
     Active Substance: PEANUT
     Dosage: 80 MG, 1X/DAY
     Route: 048

REACTIONS (2)
  - Nausea [Unknown]
  - Retching [Unknown]
